FAERS Safety Report 6732655 (Version 11)
Quarter: 2024Q2

REPORT INFORMATION
  Report Type: Report from Study
  Country: US (occurrence: US)
  Receive Date: 20080821
  Receipt Date: 20240627
  Transmission Date: 20240716
  Serious: Yes (Life-Threatening, Hospitalization, Other)
  Sender: FDA-Public Use
  Company Number: US-JNJFOC-20080500558

PATIENT
  Age: 34 Year
  Sex: Female
  Weight: 99.88 kg

DRUGS (1)
  1. REMICADE [Suspect]
     Active Substance: INFLIXIMAB
     Indication: Psoriasis
     Route: 041
     Dates: start: 20070702, end: 20080416

REACTIONS (5)
  - Loss of consciousness [Unknown]
  - Ovarian cancer [Unknown]
  - Uterine disorder [Not Recovered/Not Resolved]
  - Blood loss anaemia [Recovered/Resolved with Sequelae]
  - Abdominal pain [Recovered/Resolved with Sequelae]

NARRATIVE: CASE EVENT DATE: 20080301
